FAERS Safety Report 17495694 (Version 2)
Quarter: 2020Q2

REPORT INFORMATION
  Report Type: Spontaneous
  Country: US (occurrence: US)
  Receive Date: 20200303
  Receipt Date: 20200609
  Transmission Date: 20200713
  Serious: Yes (Death, Hospitalization, Other)
  Sender: FDA-Public Use
  Company Number: US-009507513-2003USA000678

PATIENT
  Sex: Female
  Weight: 74.38 kg

DRUGS (4)
  1. ACTOS [Concomitant]
     Active Substance: PIOGLITAZONE HYDROCHLORIDE
  2. JANUVIA [Suspect]
     Active Substance: SITAGLIPTIN PHOSPHATE
     Dosage: 50 MILLIGRAM, QD
     Route: 048
     Dates: start: 20130311, end: 201602
  3. GLIPIZIDE. [Concomitant]
     Active Substance: GLIPIZIDE
  4. JANUVIA [Suspect]
     Active Substance: SITAGLIPTIN PHOSPHATE
     Dosage: 50 MILLIGRAM, BID
     Route: 048
     Dates: start: 201602, end: 201608

REACTIONS (10)
  - Pancreatic carcinoma [Recovering/Resolving]
  - Diabetes mellitus inadequate control [Recovered/Resolved]
  - Diarrhoea [Recovered/Resolved]
  - Cholelithiasis [Unknown]
  - Pancreatitis acute [Recovered/Resolved]
  - Osteoarthritis [Not Recovered/Not Resolved]
  - Thyroid mass [Unknown]
  - Blood glucose increased [Recovered/Resolved]
  - Death [Fatal]
  - Obesity [Not Recovered/Not Resolved]

NARRATIVE: CASE EVENT DATE: 20130604
